FAERS Safety Report 4665587-2 (Version None)
Quarter: 2005Q2

REPORT INFORMATION
  Report Type: 
  Country: None (occurrence: None)
  Receive Date: 20050519
  Receipt Date: 20050510
  Transmission Date: 20051028
  Serious: Yes (Hospitalization)
  Sender: FDA-Public Use
  Company Number: US-JNJFOC-20050503211

PATIENT
  Age: 82 Year
  Sex: Female

DRUGS (2)
  1. REMINYL [Suspect]
     Route: 049
  2. CYMBALTA [Concomitant]
     Route: 049

REACTIONS (7)
  - ABASIA [None]
  - ANXIETY [None]
  - ASTHENIA [None]
  - CRYING [None]
  - FEAR [None]
  - HALLUCINATION [None]
  - STOMACH DISCOMFORT [None]
